FAERS Safety Report 10427234 (Version 1)
Quarter: 2014Q3

REPORT INFORMATION
  Report Type: Spontaneous
  Country: US (occurrence: None)
  Receive Date: 20140725
  Receipt Date: 20140725
  Transmission Date: 20150326
  Serious: No
  Sender: FDA-Public Use
  Company Number: AP356-00854-SPO-US

PATIENT
  Age: 60 Year
  Sex: Female
  Weight: 89.5 kg

DRUGS (2)
  1. BELVIQ [Suspect]
     Active Substance: LORCASERIN HYDROCHLORIDE
     Indication: WEIGHT DECREASED
     Route: 048
     Dates: start: 201405
  2. LEXAPRO [Concomitant]
     Active Substance: ESCITALOPRAM OXALATE

REACTIONS (10)
  - Dry mouth [None]
  - Dizziness [None]
  - Cough [None]
  - Pollakiuria [None]
  - Diarrhoea [None]
  - Sneezing [None]
  - Thirst [None]
  - Paraesthesia [None]
  - Oropharyngeal pain [None]
  - Fatigue [None]

NARRATIVE: CASE EVENT DATE: 201406
